FAERS Safety Report 20328690 (Version 1)
Quarter: 2022Q1

REPORT INFORMATION
  Report Type: Report from Study
  Country: US (occurrence: US)
  Receive Date: 20220112
  Receipt Date: 20220112
  Transmission Date: 20220424
  Serious: Yes (Other)
  Sender: FDA-Public Use
  Company Number: US-NOVARTISPH-NVSC2019US104633

PATIENT
  Age: 73 Year
  Sex: Male

DRUGS (7)
  1. LUTATHERA [Suspect]
     Active Substance: LUTETIUM OXODOTREOTIDE LU-177
     Indication: Product used for unknown indication
     Dosage: UNK
     Route: 065
  2. LATANOPROST [Suspect]
     Active Substance: LATANOPROST
     Indication: Glaucoma
     Dosage: UNK
     Route: 047
     Dates: start: 20190604
  3. OMEPRAZOLE [Suspect]
     Active Substance: OMEPRAZOLE
     Indication: Gastrooesophageal reflux disease
     Dosage: 20 MG, QD
     Route: 048
     Dates: start: 20190405, end: 20190408
  4. LORATADINE [Suspect]
     Active Substance: LORATADINE
     Indication: Hypersensitivity
     Dosage: 10 MG, QD
     Route: 048
     Dates: start: 20190115
  5. METOPROLOL SUCCINATE [Suspect]
     Active Substance: METOPROLOL SUCCINATE
     Indication: Heart transplant
     Dosage: 200 MG, QD, (HALF TABLET)
     Route: 048
     Dates: start: 20190405, end: 20190606
  6. SILDENAFIL CITRATE [Suspect]
     Active Substance: SILDENAFIL CITRATE
     Indication: Erectile dysfunction
     Dosage: 100 MG, QD
     Route: 048
  7. LANREOTIDE [Concomitant]
     Active Substance: LANREOTIDE
     Indication: Product used for unknown indication
     Dosage: UNK
     Route: 065

REACTIONS (25)
  - Carcinoid syndrome [Unknown]
  - Diverticulitis [Unknown]
  - Glaucoma [Unknown]
  - Macular cyst [Unknown]
  - Small intestine carcinoma [Unknown]
  - Metastasis [Unknown]
  - Metastases to liver [Unknown]
  - Atrial fibrillation [Unknown]
  - Disease progression [Unknown]
  - Osteoarthritis [Unknown]
  - Chronic obstructive pulmonary disease [Unknown]
  - Cholelithiasis [Unknown]
  - Aortic aneurysm [Unknown]
  - Hepatomegaly [Unknown]
  - Diverticulum intestinal [Unknown]
  - Emphysema [Unknown]
  - Alanine aminotransferase decreased [Unknown]
  - Blood glucose increased [Unknown]
  - Haematocrit decreased [Unknown]
  - Haemoglobin decreased [Unknown]
  - International normalised ratio decreased [Unknown]
  - Weight decreased [Unknown]
  - Chest pain [Unknown]
  - Hyperhidrosis [Unknown]
  - Abdominal pain [Unknown]

NARRATIVE: CASE EVENT DATE: 20190117
